FAERS Safety Report 7334169-6 (Version None)
Quarter: 2011Q1

REPORT INFORMATION
  Report Type: 
  Country: None (occurrence: None)
  Receive Date: 20110307
  Receipt Date: 20100104
  Transmission Date: 20110831
  Serious: No
  Sender: FDA-Public Use
  Company Number: US-BAYER-201010539NA

PATIENT
  Sex: Female
  Weight: 62.132 kg

DRUGS (2)
  1. MIRENA [Suspect]
     Indication: CONTRACEPTION
     Dosage: UNK
     Dates: start: 20091124
  2. MIRENA [Suspect]
     Indication: GENITAL HAEMORRHAGE

REACTIONS (1)
  - DEVICE EXPULSION [None]
